FAERS Safety Report 16026017 (Version 1)
Quarter: 2019Q1

REPORT INFORMATION
  Report Type: Spontaneous
  Country: US (occurrence: US)
  Receive Date: 20190302
  Receipt Date: 20190302
  Transmission Date: 20190418
  Serious: Yes (Other)
  Sender: FDA-Public Use
  Company Number: US-AUROBINDO-AUR-APL-2019-010914

PATIENT

DRUGS (8)
  1. ADALIMUMAB [Suspect]
     Active Substance: ADALIMUMAB
     Indication: IMMUNOSUPPRESSION
     Dosage: 40 MILLIGRAM, EVERY 2 WEEKS
     Route: 065
  2. PREDNISOLONE ACETATE. [Suspect]
     Active Substance: PREDNISOLONE ACETATE
     Indication: PRODUCT USED FOR UNKNOWN INDICATION
     Dosage: UNK, DAILY, 4 TIMES
     Route: 065
  3. MOXIFLOXACIN. [Suspect]
     Active Substance: MOXIFLOXACIN
     Indication: PRODUCT USED FOR UNKNOWN INDICATION
     Dosage: UNK
  4. NEPAFENAC [Suspect]
     Active Substance: NEPAFENAC
     Indication: PRODUCT USED FOR UNKNOWN INDICATION
     Dosage: UNK
     Route: 065
  5. VANCOMYCIN [Suspect]
     Active Substance: VANCOMYCIN
     Indication: ENDOPHTHALMITIS
     Dosage: UNK
  6. CEFTAZIDIME. [Suspect]
     Active Substance: CEFTAZIDIME
     Indication: ENDOPHTHALMITIS
     Dosage: UNK
     Route: 065
  7. MYCOPHENOLATE MOFETIL. [Suspect]
     Active Substance: MYCOPHENOLATE MOFETIL
     Indication: IMMUNOSUPPRESSION
     Dosage: 1.5 MILLIGRAM, DAILY
     Route: 065
  8. POLYMYXIN B SULFATE W/TRIMETHOPRIM [Suspect]
     Active Substance: POLYMYXIN B SULFATE\TRIMETHOPRIM
     Indication: PRODUCT USED FOR UNKNOWN INDICATION
     Dosage: 10000-0.1 UNIT/ML
     Route: 061

REACTIONS (12)
  - Vitreous haze [Recovered/Resolved]
  - Endophthalmitis [Unknown]
  - Retinal oedema [Unknown]
  - Retinal haemorrhage [Unknown]
  - Cystoid macular oedema [Unknown]
  - Retinal vasculitis [Unknown]
  - Visual impairment [Unknown]
  - Vitreous disorder [Recovered/Resolved]
  - Hypopyon [Recovered/Resolved]
  - Drug resistance [Unknown]
  - Condition aggravated [Unknown]
  - Vitreous floaters [Unknown]
